FAERS Safety Report 25383563 (Version 1)
Quarter: 2025Q2

REPORT INFORMATION
  Report Type: Other
  Country: CA (occurrence: CA)
  Receive Date: 20250602
  Receipt Date: 20250602
  Transmission Date: 20250716
  Serious: Yes (Hospitalization, Other)
  Sender: APOTEX
  Company Number: CA-APOTEX-2025AP007866

PATIENT
  Sex: Female

DRUGS (1)
  1. TERIFLUNOMIDE [Suspect]
     Active Substance: TERIFLUNOMIDE
     Indication: Multiple sclerosis
     Dosage: 14 MILLIGRAM, QD
     Route: 048
     Dates: start: 20250108

REACTIONS (1)
  - Pneumonia [Not Recovered/Not Resolved]
